FAERS Safety Report 4970390-X (Version None)
Quarter: 2006Q2

REPORT INFORMATION
  Report Type: 
  Country: None (occurrence: None)
  Receive Date: 20060412
  Receipt Date: 20060410
  Transmission Date: 20061013
  Serious: Yes (Other)
  Sender: FDA-Public Use
  Company Number: CA-GLAXOSMITHKLINE-A0601411A

PATIENT
  Age: 42 Year
  Sex: Female

DRUGS (5)
  1. ADVAIR DISKUS 100/50 [Suspect]
     Indication: DRUG USE FOR UNKNOWN INDICATION
     Route: 055
  2. SALBUTAMOL [Suspect]
  3. TRIMETHOPRIM-SULFAMETHOXAZOLE [Suspect]
  4. ATIVAN [Concomitant]
  5. CLARITIN [Concomitant]

REACTIONS (4)
  - ANXIETY [None]
  - DIZZINESS [None]
  - MUSCLE CONTRACTIONS INVOLUNTARY [None]
  - NIGHTMARE [None]
